FAERS Safety Report 9202044 (Version 1)
Quarter: 2013Q1

REPORT INFORMATION
  Report Type: Spontaneous
  Country: MY (occurrence: None)
  Receive Date: 20130327
  Receipt Date: 20130327
  Transmission Date: 20140127
  Serious: Yes (Other)
  Sender: FDA-Public Use
  Company Number: 2013000067

PATIENT
  Age: 63 Year
  Sex: Female

DRUGS (5)
  1. ACEON [Suspect]
     Indication: HYPERTENSION
     Route: 048
  2. SIMVASTATIN (SIMVASTATIN) [Concomitant]
  3. HYDROCHLOROTHIAZIDE (HYDROCHLOROTHIAZIDE) [Concomitant]
  4. ATENOLOL (ATENOLOL) [Concomitant]
  5. INSULIN (INSULIN) [Concomitant]

REACTIONS (2)
  - Syncope [None]
  - Dyspnoea [None]
